FAERS Safety Report 4990038-8 (Version None)
Quarter: 2006Q2

REPORT INFORMATION
  Report Type: 
  Country: None (occurrence: None)
  Receive Date: 20060427
  Receipt Date: 20060424
  Transmission Date: 20061013
  Serious: Yes (Other)
  Sender: FDA-Public Use
  Company Number: 2006050190

PATIENT
  Age: 69 Year
  Sex: Female

DRUGS (1)
  1. XALATAN [Suspect]
     Indication: ILL-DEFINED DISORDER
     Dosage: (DAILY),
     Dates: start: 20060101, end: 20060408

REACTIONS (3)
  - DRY EYE [None]
  - EYE IRRITATION [None]
  - RETINAL OEDEMA [None]
